FAERS Safety Report 4595391-5 (Version None)
Quarter: 2005Q1

REPORT INFORMATION
  Report Type: 
  Country: None (occurrence: None)
  Receive Date: 20050225
  Receipt Date: 20050225
  Transmission Date: 20050727
  Serious: Yes (Life-Threatening, Hospitalization, Disabling)
  Sender: FDA-Public Use
  Company Number: None

PATIENT
  Sex: Male
  Weight: 68.0396 kg

DRUGS (5)
  1. RITALIN [Suspect]
     Indication: DEPRESSION
     Dosage: 20 MG BID ORAL
     Route: 048
     Dates: start: 20040101, end: 20050224
  2. ULTRAM [Suspect]
     Indication: PAIN
     Dosage: 100 MG Q. 4-6 HRS PRN ORAL
     Route: 048
     Dates: start: 20050220, end: 20050221
  3. HYDROCHLOROTHIAZIDE [Concomitant]
  4. PAXIL [Concomitant]
  5. SEROQUEL [Concomitant]

REACTIONS (1)
  - GRAND MAL CONVULSION [None]
